FAERS Safety Report 6650104-8 (Version None)
Quarter: 2010Q1

REPORT INFORMATION
  Report Type: 
  Country: None (occurrence: None)
  Receive Date: 20100322
  Receipt Date: 20100307
  Transmission Date: 20100710
  Serious: Yes (Hospitalization, Other)
  Sender: FDA-Public Use
  Company Number: PAR_03295_2009

PATIENT
  Age: 83 Year
  Sex: Male

DRUGS (8)
  1. IBUPROFEN [Suspect]
     Indication: PAIN
     Dosage: 1800 MG,
     Dates: start: 20091207
  2. RIVAROXABAN [Suspect]
     Indication: KNEE ARTHROPLASTY
     Dosage: DF, ORAL
     Route: 048
     Dates: start: 20091207, end: 20091209
  3. RIVAROXABAN [Suspect]
     Indication: THROMBOSIS PROPHYLAXIS
     Dosage: DF, ORAL
     Route: 048
     Dates: start: 20091207, end: 20091209
  4. TERAZOSIN HCL [Concomitant]
  5. ZINACEF [Concomitant]
  6. PANTOPRAZOLE SODIUM [Concomitant]
  7. ENOXAPARIN SODIUM [Concomitant]
  8. EMBOLEX [Concomitant]

REACTIONS (5)
  - ACTIVATED PARTIAL THROMBOPLASTIN TIME PROLONGED [None]
  - DRUG INTERACTION [None]
  - HAEMORRHAGIC ANAEMIA [None]
  - INTERNATIONAL NORMALISED RATIO INCREASED [None]
  - POST PROCEDURAL HAEMORRHAGE [None]
